FAERS Safety Report 8323783-7 (Version None)
Quarter: 2012Q2

REPORT INFORMATION
  Report Type: 
  Country: None (occurrence: None)
  Receive Date: 20120501
  Receipt Date: 20120419
  Transmission Date: 20120825
  Serious: Yes (Other)
  Sender: FDA-Public Use
  Company Number: GB-NOVOPROD-350021

PATIENT
  Age: 69 Year
  Sex: Male

DRUGS (3)
  1. SITAGLIPTIN [Concomitant]
     Indication: PRODUCT USED FOR UNKNOWN INDICATION
     Dosage: UNK
  2. VICTOZA [Suspect]
     Indication: TYPE 2 DIABETES MELLITUS
     Dosage: UNK
     Route: 065
     Dates: start: 20111101, end: 20120101
  3. METFORMIN HCL [Concomitant]
     Indication: PRODUCT USED FOR UNKNOWN INDICATION
     Dosage: UNK

REACTIONS (6)
  - DIZZINESS [None]
  - WEIGHT DECREASED [None]
  - DECREASED APPETITE [None]
  - HEAD INJURY [None]
  - LOSS OF CONSCIOUSNESS [None]
  - CONSTIPATION [None]
